FAERS Safety Report 15778190 (Version 2)
Quarter: 2019Q1

REPORT INFORMATION
  Report Type: Spontaneous
  Country: US (occurrence: US)
  Receive Date: 20181231
  Receipt Date: 20190325
  Transmission Date: 20190417
  Serious: No
  Sender: FDA-Public Use
  Company Number: US-AVEDRO-AVE-2018-0272-AE

PATIENT
  Age: 17 Year
  Sex: Male

DRUGS (4)
  1. BANDAGE CONTACT LENS [Suspect]
     Active Substance: DEVICE
     Indication: PRODUCT USED FOR UNKNOWN INDICATION
  2. FLUOROMETHOLONE. [Concomitant]
     Active Substance: FLUOROMETHOLONE
     Indication: PRODUCT USED FOR UNKNOWN INDICATION
     Dosage: 4 TIMES DAILY FOR 1 MONTH
     Route: 047
  3. AVEDRO CROSS-LINKING PRODUCT(S), UNSPECIFIED [Suspect]
     Active Substance: RIBOFLAVIN 5^-PHOSPHATE SODIUM
     Indication: KERATOCONUS
     Route: 047
  4. OFLOXACIN. [Concomitant]
     Active Substance: OFLOXACIN
     Indication: PRODUCT USED FOR UNKNOWN INDICATION
     Dosage: 4 TIMES DAILY FOR 1 WEEK
     Route: 047

REACTIONS (5)
  - Corneal epithelium defect [Recovered/Resolved]
  - Hypopyon [Recovering/Resolving]
  - Keratitis fungal [Recovering/Resolving]
  - Ulcerative keratitis [Recovering/Resolving]
  - Staphylococcal infection [Recovering/Resolving]
